FAERS Safety Report 7612940-0 (Version None)
Quarter: 2011Q3

REPORT INFORMATION
  Report Type: 
  Country: None (occurrence: None)
  Receive Date: 20110708
  Receipt Date: 20110629
  Transmission Date: 20111222
  Serious: Yes (Other)
  Sender: FDA-Public Use
  Company Number: DKLU1071763

PATIENT
  Age: 11 Month
  Sex: Male

DRUGS (2)
  1. COSMEGEN [Suspect]
     Indication: NEPHROBLASTOMA
     Dosage: INTRAVENOUS (NOT OTHERWISE SPECIFIED)
     Route: 042
  2. ONCOVIN [Concomitant]

REACTIONS (7)
  - REFRACTORINESS TO PLATELET TRANSFUSION [None]
  - GENERAL PHYSICAL HEALTH DETERIORATION [None]
  - HEPATIC ENCEPHALOPATHY [None]
  - DISSEMINATED INTRAVASCULAR COAGULATION [None]
  - GASTROINTESTINAL HAEMORRHAGE [None]
  - PYREXIA [None]
  - VENOOCCLUSIVE LIVER DISEASE [None]
